FAERS Safety Report 12465100 (Version 4)
Quarter: 2016Q4

REPORT INFORMATION
  Report Type: Spontaneous
  Country: US (occurrence: US)
  Receive Date: 20160614
  Receipt Date: 20161212
  Transmission Date: 20170207
  Serious: Yes (Death, Life-Threatening, Hospitalization, Other)
  Sender: FDA-Public Use
  Company Number: US-ELI_LILLY_AND_COMPANY-US201606004238

PATIENT
  Age: 57 Year
  Sex: Male
  Weight: 91 kg

DRUGS (10)
  1. VIAGRA [Concomitant]
     Active Substance: SILDENAFIL CITRATE
     Indication: ERECTILE DYSFUNCTION
     Dosage: UNK
     Dates: start: 201001
  2. TESTIM [Suspect]
     Active Substance: TESTOSTERONE
     Indication: ANDROGEN REPLACEMENT THERAPY
     Dosage: UNK UNK, QD
     Route: 065
     Dates: start: 200609, end: 201407
  3. AXIRON [Suspect]
     Active Substance: TESTOSTERONE
     Indication: ANDROGEN REPLACEMENT THERAPY
     Dosage: UNK UNK, QD
     Route: 062
     Dates: start: 200609, end: 201405
  4. DHEA [Suspect]
     Active Substance: PRASTERONE
     Indication: ANDROGEN REPLACEMENT THERAPY
     Dosage: UNK, QD
     Route: 065
     Dates: end: 201405
  5. RAMPRIL [Concomitant]
     Active Substance: RAMIPRIL
     Indication: CARDIAC DISORDER
     Dosage: UNK
     Route: 065
     Dates: start: 201003
  6. CIALIS [Concomitant]
     Active Substance: TADALAFIL
     Indication: ERECTILE DYSFUNCTION
     Dosage: UNK
     Dates: start: 201112, end: 201407
  7. ANDROGEL [Suspect]
     Active Substance: TESTOSTERONE
     Indication: ANDROGEN REPLACEMENT THERAPY
     Dosage: UNK, UNKNOWN
     Route: 065
     Dates: start: 200609, end: 201405
  8. LEVOTHYROXIN [Concomitant]
     Active Substance: LEVOTHYROXINE
     Indication: THYROID DISORDER
     Dosage: UNK
     Route: 065
  9. BUPROPION. [Concomitant]
     Active Substance: BUPROPION
     Indication: CARDIAC DISORDER
     Dosage: UNK
     Dates: start: 201003
  10. ANASTROZOLE. [Suspect]
     Active Substance: ANASTROZOLE
     Indication: ANDROGEN REPLACEMENT THERAPY
     Dosage: UNK, QD
     Route: 065
     Dates: start: 201212, end: 201405

REACTIONS (12)
  - Acute respiratory failure [Unknown]
  - Pneumonia [Unknown]
  - Staphylococcal infection [Unknown]
  - Cardiac death [Fatal]
  - Cardiac arrest [Unknown]
  - Seizure [Unknown]
  - Cerebrovascular accident [Unknown]
  - Status epilepticus [Unknown]
  - Myocardial infarction [Unknown]
  - Brain injury [Unknown]
  - Cardiomyopathy [Unknown]
  - Left ventricular dysfunction [Unknown]

NARRATIVE: CASE EVENT DATE: 20140507
